FAERS Safety Report 7098884-4 (Version None)
Quarter: 2010Q4

REPORT INFORMATION
  Report Type: 
  Country: None (occurrence: None)
  Receive Date: 20101110
  Receipt Date: 20101110
  Transmission Date: 20110411
  Serious: Yes (Hospitalization)
  Sender: FDA-Public Use
  Company Number: None

PATIENT
  Age: 50 Year
  Sex: Male
  Weight: 76.77 kg

DRUGS (5)
  1. LENALIDOMIDE [Suspect]
     Indication: HEPATIC NEOPLASM MALIGNANT
     Dosage: 25MG X21 QD PO
     Route: 048
     Dates: start: 20101011
  2. AMLODIPINE [Concomitant]
  3. HYDROCHLOROTHIAZIDE [Concomitant]
  4. PANTOPRAZOLE [Concomitant]
  5. SENNA [Concomitant]

REACTIONS (3)
  - DYSPNOEA [None]
  - RASH ERYTHEMATOUS [None]
  - RASH PRURITIC [None]
